FAERS Safety Report 6983434-0 (Version None)
Quarter: 2010Q3

REPORT INFORMATION
  Report Type: 
  Country: None (occurrence: None)
  Receive Date: 20100914
  Receipt Date: 20100914
  Transmission Date: 20110219
  Serious: Yes (Disabling)
  Sender: FDA-Public Use
  Company Number: None

PATIENT
  Age: 72 Year
  Sex: Female
  Weight: 96.6162 kg

DRUGS (10)
  1. LEVAQUIN [Suspect]
     Indication: BRONCHITIS
     Dosage: LEVAQUIN 500MG ONE DAILY P.O.
     Route: 048
     Dates: start: 20100714
  2. LIPITOR [Concomitant]
  3. NEXIUM [Concomitant]
  4. HYDROCHLOROTHIAZIDE [Concomitant]
  5. BENAZEPRIL HYDROCHLORIDE [Concomitant]
  6. SYNTHROID [Concomitant]
  7. PAROXETINE HCL [Concomitant]
  8. FENOFIBRATE [Concomitant]
  9. AMLODIPINE [Concomitant]
  10. ATENOLOL [Concomitant]

REACTIONS (1)
  - TENDON RUPTURE [None]
